FAERS Safety Report 9057965 (Version 1)
Quarter: 2013Q1

REPORT INFORMATION
  Report Type: Spontaneous
  Country: US (occurrence: None)
  Receive Date: 20130117
  Receipt Date: 20130117
  Transmission Date: 20140127
  Serious: Yes (Death, Other)
  Sender: FDA-Public Use
  Company Number: AUR-APL-2013-00252

PATIENT
  Age: 38 Year
  Sex: Female

DRUGS (3)
  1. CARISOPRODOL [Suspect]
     Indication: PRODUCT USED FOR UNKNOWN INDICATION
  2. OXYCODONE (OXYCODONE) [Suspect]
  3. DIAZEPAM (DIAZEPAM) [Suspect]

REACTIONS (3)
  - Cardiac arrest [None]
  - Respiratory arrest [None]
  - Toxicity to various agents [None]
